FAERS Safety Report 10953027 (Version 1)
Quarter: 2015Q1

REPORT INFORMATION
  Report Type: Spontaneous
  Country: CA (occurrence: CA)
  Receive Date: 20150325
  Receipt Date: 20150325
  Transmission Date: 20150721
  Serious: Yes (Other)
  Sender: FDA-Public Use
  Company Number: CA-PFIZER INC-2015097271

PATIENT
  Age: 80 Year
  Sex: Male

DRUGS (1)
  1. SOMAVERT [Suspect]
     Active Substance: PEGVISOMANT
     Dosage: 15 MG, UNK

REACTIONS (3)
  - Tinnitus [Not Recovered/Not Resolved]
  - Ear disorder [Not Recovered/Not Resolved]
  - Neoplasm [Not Recovered/Not Resolved]
